FAERS Safety Report 10061308 (Version 2)
Quarter: 2014Q2

REPORT INFORMATION
  Report Type: Spontaneous
  Country: BG (occurrence: BG)
  Receive Date: 20140407
  Receipt Date: 20140410
  Transmission Date: 20141212
  Serious: Yes (Other)
  Sender: FDA-Public Use
  Company Number: BG-ROCHE-1377160

PATIENT
  Sex: Female
  Weight: 55 kg

DRUGS (7)
  1. XOLAIR [Suspect]
     Indication: ASTHMA
     Route: 030
     Dates: start: 201401, end: 201401
  2. XOLAIR [Suspect]
     Route: 030
     Dates: start: 201402, end: 201402
  3. XOLAIR [Suspect]
     Route: 030
     Dates: start: 201403, end: 201403
  4. SYMBICORT [Concomitant]
  5. SINGULAIR [Concomitant]
  6. ANALGIN (BULGARIA) [Concomitant]
  7. PARACETAMOL [Concomitant]

REACTIONS (2)
  - Anaphylactic reaction [Recovered/Resolved]
  - Incorrect route of drug administration [Unknown]
